FAERS Safety Report 12390149 (Version 2)
Quarter: 2016Q2

REPORT INFORMATION
  Report Type: Report from Study
  Country: US (occurrence: US)
  Receive Date: 20160520
  Receipt Date: 20160616
  Transmission Date: 20160815
  Serious: Yes (Hospitalization)
  Sender: FDA-Public Use
  Company Number: US-JNJFOC-20160508645

PATIENT
  Age: 84 Year
  Sex: Female
  Weight: 61.24 kg

DRUGS (13)
  1. TYLENOL [Suspect]
     Active Substance: ACETAMINOPHEN
     Route: 065
  2. TYLENOL [Suspect]
     Active Substance: ACETAMINOPHEN
     Indication: PAIN
     Route: 065
  3. ASPIRIN. [Concomitant]
     Active Substance: ASPIRIN
     Indication: BLOOD PRESSURE MEASUREMENT
     Route: 065
  4. VITAMIN B6 [Concomitant]
     Active Substance: PYRIDOXINE HYDROCHLORIDE
     Indication: NUTRITIONAL SUPPLEMENTATION
     Route: 065
  5. LOSARTAN POTASSIUM AND HYDROCHLOROTHIAZIDE [Concomitant]
     Active Substance: HYDROCHLOROTHIAZIDE\LOSARTAN POTASSIUM
     Indication: HYPERTENSION
     Dosage: 1 AND 1/2 TABLETS,  50-125MG
     Route: 065
  6. AMIODARONE [Concomitant]
     Active Substance: AMIODARONE
     Indication: CARDIAC DISORDER
     Route: 065
  7. OMEGA-3 FATTY ACIDS [Concomitant]
     Active Substance: OMEGA-3 FATTY ACIDS
     Indication: NUTRITIONAL SUPPLEMENTATION
     Route: 065
  8. GABAPENTIN. [Concomitant]
     Active Substance: GABAPENTIN
     Indication: ARTHRITIS
     Route: 065
     Dates: start: 201604
  9. XARELTO [Suspect]
     Active Substance: RIVAROXABAN
     Indication: ARTERIAL DISORDER
     Route: 048
     Dates: start: 201603, end: 20160504
  10. OXYGEN. [Concomitant]
     Active Substance: OXYGEN
     Indication: CHRONIC OBSTRUCTIVE PULMONARY DISEASE
     Dosage: 3 LITRES AS NEEDED
     Route: 065
  11. LEVEMIR [Concomitant]
     Active Substance: INSULIN DETEMIR
     Indication: TYPE 2 DIABETES MELLITUS
     Dosage: 10 UNITS
     Route: 065
  12. TRAMADOL HCL [Suspect]
     Active Substance: TRAMADOL HYDROCHLORIDE
     Indication: PAIN
     Route: 048
     Dates: start: 2016, end: 2016
  13. GABAPENTIN. [Concomitant]
     Active Substance: GABAPENTIN
     Indication: ARTHRITIS
     Route: 065
     Dates: start: 201604

REACTIONS (14)
  - Groin pain [Not Recovered/Not Resolved]
  - Dizziness [Recovering/Resolving]
  - Nausea [Not Recovered/Not Resolved]
  - Malaise [Recovering/Resolving]
  - Product use issue [Unknown]
  - Myalgia [Not Recovered/Not Resolved]
  - Myocardial infarction [Unknown]
  - Pain in extremity [Recovering/Resolving]
  - Off label use [Unknown]
  - Asthenia [Not Recovered/Not Resolved]
  - Burning sensation [Recovering/Resolving]
  - Overdose [Recovered/Resolved]
  - Fatigue [Not Recovered/Not Resolved]
  - Muscular weakness [Not Recovered/Not Resolved]

NARRATIVE: CASE EVENT DATE: 201603
